FAERS Safety Report 4319002-9 (Version None)
Quarter: 2004Q1

REPORT INFORMATION
  Report Type: 
  Country: None (occurrence: None)
  Receive Date: 20040316
  Receipt Date: 20040302
  Transmission Date: 20041129
  Serious: Yes (Death, Other)
  Sender: FDA-Public Use
  Company Number: 2003-BP-07433PF

PATIENT
  Age: 83 Year
  Sex: Male

DRUGS (4)
  1. SPIRIVA [Suspect]
     Dosage: 18 MCG (18 MCG, DAILY), IH
     Route: 055
  2. RANITIDINE [Concomitant]
  3. CAPTOPRIL [Concomitant]
  4. TEOBID (THEOPHYLLINE) [Concomitant]

REACTIONS (4)
  - CARDIAC ARREST [None]
  - CARDIAC FAILURE CONGESTIVE [None]
  - PAIN [None]
  - RESPIRATORY FAILURE [None]
